FAERS Safety Report 5023636-6 (Version None)
Quarter: 2006Q2

REPORT INFORMATION
  Report Type: 
  Country: None (occurrence: None)
  Receive Date: 20060606
  Receipt Date: 20060525
  Transmission Date: 20061013
  Serious: No
  Sender: FDA-Public Use
  Company Number: BR200605006027

PATIENT
  Age: 36 Year
  Sex: Female
  Weight: 82 kg

DRUGS (2)
  1. ZYPREXA [Suspect]
     Indication: SCHIZOPHRENIA
     Dosage: SEE IMAGE
     Route: 048
     Dates: start: 20010601
  2. GEODON [Concomitant]

REACTIONS (6)
  - BLOOD TRIGLYCERIDES INCREASED [None]
  - HEPATOMEGALY [None]
  - LIPIDS INCREASED [None]
  - UTERINE ENLARGEMENT [None]
  - UTERINE HAEMORRHAGE [None]
  - WEIGHT INCREASED [None]
